FAERS Safety Report 7941151-4 (Version None)
Quarter: 2011Q4

REPORT INFORMATION
  Report Type: 
  Country: None (occurrence: None)
  Receive Date: 20111128
  Receipt Date: 20111019
  Transmission Date: 20120403
  Serious: Yes (Hospitalization, Other)
  Sender: FDA-Public Use
  Company Number: US-ROXANE LABORATORIES, INC.-2011-DE-05865GD

PATIENT
  Sex: Female

DRUGS (2)
  1. PREDNISONE TAB [Suspect]
     Indication: IMMUNOSUPPRESSANT DRUG THERAPY
     Dosage: 5 - 10 MG
  2. CYCLOSPORINE [Suspect]
     Indication: IMMUNOSUPPRESSANT DRUG THERAPY
     Dosage: 200 MG

REACTIONS (6)
  - FUNGAL SKIN INFECTION [None]
  - SUPERINFECTION BACTERIAL [None]
  - SKIN ULCER [None]
  - B-CELL LYMPHOMA [None]
  - MYCOSIS FUNGOIDES [None]
  - FUSARIUM INFECTION [None]
